FAERS Safety Report 13988876 (Version 2)
Quarter: 2017Q4

REPORT INFORMATION
  Report Type: Spontaneous
  Country: IL (occurrence: IL)
  Receive Date: 20170919
  Receipt Date: 20171011
  Transmission Date: 20180321
  Serious: Yes (Hospitalization)
  Sender: FDA-Public Use
  Company Number: IL-BAXTER-2017BAX032260

PATIENT
  Age: 62 Year
  Sex: Female

DRUGS (11)
  1. POTASSIUM CHLORIDE. [Suspect]
     Active Substance: POTASSIUM CHLORIDE
     Indication: PARENTERAL NUTRITION
     Dosage: 14.9% 500 ML
     Route: 042
     Dates: end: 20170905
  2. SYNTHAMIN [Suspect]
     Active Substance: AMINO ACIDS
     Indication: PARENTERAL NUTRITION
     Dosage: 3 LITERS
     Route: 042
     Dates: end: 20170905
  3. MAGNESIUM SULFATE. [Suspect]
     Active Substance: MAGNESIUM SULFATE
     Indication: PARENTERAL NUTRITION
     Dosage: 50% W/V
     Route: 042
     Dates: end: 20170905
  4. LIPOFUNDIN [Suspect]
     Active Substance: EGG PHOSPHOLIPIDS\GLYCERIN\SOYBEAN OIL
     Indication: PARENTERAL NUTRITION
     Route: 042
     Dates: end: 20170905
  5. STERILE WATER FOR INJECTION [Suspect]
     Active Substance: WATER
     Indication: PARENTERAL NUTRITION
     Dosage: 3 LITERS
     Route: 042
     Dates: end: 20170905
  6. SODIUM CHLORIDE. [Suspect]
     Active Substance: SODIUM CHLORIDE
     Indication: PARENTERAL NUTRITION
     Dosage: 23.4% W/V
     Route: 042
     Dates: end: 20170905
  7. CERNEVIT [Suspect]
     Active Substance: VITAMINS
     Indication: PARENTERAL NUTRITION
     Route: 042
     Dates: end: 20170905
  8. GLUCOSE 50 %, SOLUTION POUR PERFUSION [Suspect]
     Active Substance: DEXTROSE
     Indication: PARENTERAL NUTRITION
     Dosage: GLUCOSE 50% (DEX MONO 55%) 3L
     Route: 042
     Dates: end: 20170905
  9. SODIUM GLYCEROPHOSPHATE [Suspect]
     Active Substance: SODIUM GLYCEROPHOSPHATE
     Indication: PARENTERAL NUTRITION
     Dosage: 21.6% W/V 500 ML
     Route: 042
     Dates: end: 20170905
  10. CALCIUM GLUCONATE. [Suspect]
     Active Substance: CALCIUM GLUCONATE
     Indication: PARENTERAL NUTRITION
     Dosage: 10% W/V
     Route: 042
     Dates: end: 20170905
  11. ADDAMEL N [Suspect]
     Active Substance: CHROMIC CHLORIDE\CUPROUS CHLORIDE\FERRIC CHLORIDE\MANGANESE CHLORIDE\POTASSIUM IODIDE\SODIUM FLUORIDE\SODIUM MOLYBDATE DIHYDRATE\SODIUM SELENITE\ZINC CHLORIDE
     Indication: PARENTERAL NUTRITION
     Route: 042
     Dates: end: 20170905

REACTIONS (2)
  - Blood pressure fluctuation [Recovered/Resolved]
  - Systemic bacterial infection [Not Recovered/Not Resolved]

NARRATIVE: CASE EVENT DATE: 201709
